FAERS Safety Report 4384804-X (Version None)
Quarter: 2004Q2

REPORT INFORMATION
  Report Type: 
  Country: None (occurrence: None)
  Receive Date: 20040622
  Receipt Date: 20040622
  Transmission Date: 20050107
  Serious: Yes (Death)
  Sender: FDA-Public Use
  Company Number: None

PATIENT
  Age: 65 Year
  Sex: Male
  Weight: 75.7 kg

DRUGS (11)
  1. DAPTOMYCIN 500MG VIAL CUBIST [Suspect]
     Indication: BLOOD CULTURE POSITIVE
     Dosage: 300 MG DAILY INTRAVENOUS
     Route: 042
     Dates: start: 20040330, end: 20040403
  2. DAPTOMYCIN 500MG VIAL CUBIST [Suspect]
     Indication: FEBRILE NEUTROPENIA
     Dosage: 300 MG DAILY INTRAVENOUS
     Route: 042
     Dates: start: 20040330, end: 20040403
  3. TYLENOL [Concomitant]
  4. AZACTAM [Concomitant]
  5. FILGRASTIM [Concomitant]
  6. FLUCONAZOLE [Concomitant]
  7. AMARYL [Concomitant]
  8. HUMAN REG INSULIN [Concomitant]
  9. METFORMIN [Concomitant]
  10. RIFAMPIN [Concomitant]
  11. AMBIEN [Concomitant]

REACTIONS (4)
  - HAEMORRHAGE [None]
  - NERVOUS SYSTEM DISORDER [None]
  - PLATELET COUNT DECREASED [None]
  - SUDDEN DEATH [None]
